FAERS Safety Report 7287941-5 (Version None)
Quarter: 2011Q1

REPORT INFORMATION
  Report Type: 
  Country: None (occurrence: None)
  Receive Date: 20110211
  Receipt Date: 20110208
  Transmission Date: 20110831
  Serious: Yes (Other)
  Sender: FDA-Public Use
  Company Number: US-AMGEN-USASP2011007888

PATIENT
  Sex: Female

DRUGS (3)
  1. NPLATE [Suspect]
     Indication: IDIOPATHIC THROMBOCYTOPENIC PURPURA
     Dosage: 3 A?G/KG, UNK
  2. CORTICOSTEROIDS [Concomitant]
  3. IVIGLOB-EX [Concomitant]

REACTIONS (2)
  - PAIN IN EXTREMITY [None]
  - BONE MARROW RETICULIN FIBROSIS [None]
